FAERS Safety Report 10072614 (Version 1)
Quarter: 2014Q2

REPORT INFORMATION
  Report Type: Spontaneous
  Country: GB (occurrence: GB)
  Receive Date: 20140411
  Receipt Date: 20140411
  Transmission Date: 20141212
  Serious: Yes (Other)
  Sender: FDA-Public Use
  Company Number: PHFR2014GB002665

PATIENT
  Sex: Male

DRUGS (4)
  1. DESFERAL [Suspect]
     Indication: SERUM FERRITIN INCREASED
     Dosage: UNK
  2. EPOETIN ZETA [Suspect]
     Indication: RED BLOOD CELL COUNT DECREASED
     Dosage: 30000
     Dates: start: 201312
  3. EPOETIN ZETA [Suspect]
     Dosage: 60000
  4. EPOETIN ZETA [Suspect]
     Dosage: 80000

REACTIONS (1)
  - Haemoglobin decreased [Unknown]
